FAERS Safety Report 23280314 (Version 2)
Quarter: 2024Q1

REPORT INFORMATION
  Report Type: Report from Study
  Country: US (occurrence: US)
  Receive Date: 20231210
  Receipt Date: 20240227
  Transmission Date: 20240409
  Serious: No
  Sender: FDA-Public Use
  Company Number: US-AstraZeneca-CH-00522221A

PATIENT
  Sex: Male

DRUGS (2)
  1. ULTOMIRIS [Suspect]
     Active Substance: RAVULIZUMAB-CWVZ
     Indication: Product used for unknown indication
     Dosage: UNK
     Route: 065
  2. HUMAN IMMUNOGLOBULIN G [Concomitant]
     Active Substance: HUMAN IMMUNOGLOBULIN G
     Indication: Product used for unknown indication
     Dosage: UNK, Q3W
     Route: 065

REACTIONS (7)
  - Diplopia [Unknown]
  - Muscular weakness [Unknown]
  - Off label use [Unknown]
  - Dysphagia [Unknown]
  - Dysphonia [Unknown]
  - Dizziness [Unknown]
  - Asthenia [Unknown]
